FAERS Safety Report 6438585-6 (Version None)
Quarter: 2009Q4

REPORT INFORMATION
  Report Type: 
  Country: None (occurrence: None)
  Receive Date: 20091110
  Receipt Date: 20091026
  Transmission Date: 20100525
  Serious: Yes (Hospitalization)
  Sender: FDA-Public Use
  Company Number: KV200800184

PATIENT
  Age: 64 Year
  Sex: Female
  Weight: 56.2 kg

DRUGS (29)
  1. MORPHINE SULFATE [Suspect]
     Indication: PAIN
     Dosage: SEE IMAGE
     Route: 048
     Dates: start: 20070924, end: 20071017
  2. MORPHINE SULFATE [Suspect]
     Indication: PAIN
     Dosage: SEE IMAGE
     Route: 048
     Dates: start: 20071017, end: 20080125
  3. MORPHINE SULFATE [Suspect]
     Indication: PAIN
     Dosage: SEE IMAGE
     Route: 048
     Dates: start: 20080125, end: 20081015
  4. MORPHINE SULFATE [Suspect]
     Indication: PAIN
     Dosage: SEE IMAGE
     Route: 048
     Dates: start: 20081015, end: 20081117
  5. MORPHINE SULFATE [Suspect]
     Indication: PAIN
     Dosage: SEE IMAGE
     Route: 048
     Dates: start: 20081117
  6. MORPHINE SULFATE [Suspect]
     Indication: PAIN
     Dosage: 60 MG, Q8H, ORAL
     Route: 048
     Dates: start: 20070101, end: 20070910
  7. MORPHINE SULFATE [Suspect]
     Indication: PAIN
     Dosage: 100 MG, BID, ORAL
     Route: 048
     Dates: start: 20081029
  8. OXYCODONE HCL [Suspect]
     Indication: PAIN
     Dosage: 10 MG (2 TABLETS), Q4H, ORAL
     Route: 048
     Dates: end: 20070711
  9. OXYCODONE HCL [Suspect]
     Indication: PAIN
     Dosage: 15 MG, Q2H PRN WHILE AWAKE, ORAL; 5 MG, Q2H, ORAL
     Route: 048
     Dates: start: 20070924, end: 20071207
  10. FLORINAL WITH CODEINE (ACETYLSALICYLIC ACID, BUTALBITAL, CAFFEINE, COD [Suspect]
     Indication: HEADACHE
     Dosage: 1 CAPSULE AT BEDTIME, ORAL
     Route: 048
     Dates: start: 20070924, end: 20071207
  11. ZOLPIDEM [Concomitant]
  12. ACYCLOVIR /00587301/ (ACICLOVIR) [Concomitant]
  13. ASPIRIN [Concomitant]
  14. BUMETANIDE [Concomitant]
  15. CALCIUM CARBONATE [Concomitant]
  16. EZETIMIBE [Concomitant]
  17. LANSOPRAZOLE [Concomitant]
  18. LEVOTHYROXINE SODIUM [Concomitant]
  19. PAROXETINE HCL [Concomitant]
  20. SENOKOT /00142201/ (SENNA ALEXANDRINA) [Concomitant]
  21. SPIRONOLACTONE [Concomitant]
  22. DOCUSATE SODIUM (DOCUSATE SODIUM) [Concomitant]
  23. ENOXAPARIN SODIUM [Concomitant]
  24. FERROUS GLUCONATE (FERROUS GLUCONATE) [Concomitant]
  25. METOPROLOL TARTRATE [Concomitant]
  26. PREGABALIN [Concomitant]
  27. SIMVASTATIN [Concomitant]
  28. APRAZOLAM (APRAZOLAM) [Concomitant]
  29. BONIVA [Concomitant]

REACTIONS (24)
  - ANXIETY [None]
  - COGNITIVE DISORDER [None]
  - CONSTIPATION [None]
  - DECREASED APPETITE [None]
  - DEPRESSION [None]
  - DISORIENTATION [None]
  - DRUG INEFFECTIVE [None]
  - FALL [None]
  - FATIGUE [None]
  - HEADACHE [None]
  - HIP FRACTURE [None]
  - IMPAIRED GASTRIC EMPTYING [None]
  - INSOMNIA [None]
  - MUSCULAR WEAKNESS [None]
  - NAUSEA [None]
  - NEUROPATHY PERIPHERAL [None]
  - OEDEMA PERIPHERAL [None]
  - OVERDOSE [None]
  - PRODUCT QUALITY ISSUE [None]
  - RASH [None]
  - SEDATION [None]
  - SOMNOLENCE [None]
  - STRESS [None]
  - WALKING AID USER [None]
